FAERS Safety Report 5823227-0 (Version None)
Quarter: 2008Q3

REPORT INFORMATION
  Report Type: 
  Country: None (occurrence: None)
  Receive Date: 20080725
  Receipt Date: 20070727
  Transmission Date: 20090109
  Serious: No
  Sender: FDA-Public Use
  Company Number: A0666741A

PATIENT
  Age: 49 Year
  Sex: Female

DRUGS (4)
  1. DYAZIDE [Suspect]
     Indication: HYPERTENSION
     Dosage: 37.5MG PER DAY
     Route: 048
     Dates: start: 20060101
  2. ALBUTEROL [Concomitant]
  3. MUSCLE RELAXER [Concomitant]
  4. PREDNISONE [Concomitant]

REACTIONS (3)
  - CHEST PAIN [None]
  - DRY MOUTH [None]
  - DYSPNOEA [None]
